FAERS Safety Report 4987813-2 (Version None)
Quarter: 2006Q2

REPORT INFORMATION
  Report Type: 
  Country: None (occurrence: None)
  Receive Date: 20060426
  Receipt Date: 20060410
  Transmission Date: 20061013
  Serious: Yes (Other)
  Sender: FDA-Public Use
  Company Number: DE200604002614

PATIENT
  Sex: Female

DRUGS (6)
  1. ZYPREXA [Suspect]
     Indication: SCHIZOAFFECTIVE DISORDER
     Dosage: 10 MG 2/D, ORAL
     Route: 048
     Dates: start: 20060301, end: 20060401
  2. PIPAMPERONE [Concomitant]
  3. PANTOPRAZOLE [Concomitant]
  4. CAPTOPRIL [Concomitant]
  5. AMITRIPTYLINE HCL [Concomitant]
  6. GLIANIMON (BENPERIDOL) [Concomitant]

REACTIONS (2)
  - GENERAL PHYSICAL HEALTH DETERIORATION [None]
  - HYPOTHERMIA [None]
